FAERS Safety Report 5971261-2 (Version None)
Quarter: 2008Q4

REPORT INFORMATION
  Report Type: 
  Country: None (occurrence: None)
  Receive Date: 20081128
  Receipt Date: 20081118
  Transmission Date: 20090506
  Serious: Yes (Death, Hospitalization)
  Sender: FDA-Public Use
  Company Number: GB-PFIZER INC-2008087137

PATIENT
  Age: 41 Year
  Sex: Male

DRUGS (4)
  1. VORICONAZOLE [Interacting]
     Dates: start: 20040101
  2. OMEPRAZOLE [Interacting]
     Dates: start: 20040101
  3. ITRACONAZOLE [Suspect]
  4. AMPHOTERICIN B [Concomitant]
     Dates: start: 20040101

REACTIONS (7)
  - DRUG INTERACTION [None]
  - DRUG INTOLERANCE [None]
  - GASTROINTESTINAL CANDIDIASIS [None]
  - MUCOCUTANEOUS CANDIDIASIS [None]
  - NEUTROPENIA [None]
  - OESOPHAGEAL CARCINOMA [None]
  - VENTRICULAR DYSFUNCTION [None]
